FAERS Safety Report 9158627 (Version 1)
Quarter: 2013Q1

REPORT INFORMATION
  Report Type: Spontaneous
  Country: ES (occurrence: ES)
  Receive Date: 20130312
  Receipt Date: 20130312
  Transmission Date: 20140127
  Serious: Yes (Hospitalization)
  Sender: FDA-Public Use
  Company Number: PHHY2013ES022322

PATIENT
  Age: 30 Year
  Sex: Male

DRUGS (5)
  1. RIMSTAR [Suspect]
     Dosage: 4 DF, DAILY
     Route: 048
     Dates: start: 20121017, end: 20121023
  2. ACYCLOVIR [Concomitant]
     Dates: start: 20121017, end: 20121031
  3. VANCOMYCIN [Concomitant]
     Dates: start: 20121018, end: 20121028
  4. CEFTRIAXONE [Concomitant]
     Dates: start: 20121017, end: 20121028
  5. SEPTRIN [Concomitant]
     Dates: start: 20121018, end: 20121031

REACTIONS (1)
  - Pancreatitis acute [Recovered/Resolved]
